FAERS Safety Report 7329043-5 (Version None)
Quarter: 2011Q1

REPORT INFORMATION
  Report Type: 
  Country: None (occurrence: None)
  Receive Date: 20110303
  Receipt Date: 20110222
  Transmission Date: 20110831
  Serious: Yes (Hospitalization)
  Sender: FDA-Public Use
  Company Number: FR-BAXTER-2010BH009352

PATIENT
  Age: 59 Year
  Sex: Female
  Weight: 40 kg

DRUGS (22)
  1. MOPRAL [Concomitant]
     Dates: start: 20091214, end: 20100222
  2. EFFERALGAN [Concomitant]
     Indication: TOOTH ABSCESS
     Dates: start: 20100222, end: 20100222
  3. ACTONEL [Concomitant]
     Dates: start: 20091029, end: 20091112
  4. FORLAX [Concomitant]
     Dates: start: 20090101, end: 20091017
  5. AMOXICILLIN TRIHYDRATE [Concomitant]
     Indication: TOOTH ABSCESS
     Dates: start: 20100225, end: 20100304
  6. NOVORAPID [Concomitant]
     Indication: DIABETES MELLITUS
     Dates: start: 20091018, end: 20091125
  7. CACIT D3 [Concomitant]
     Dates: start: 20091015, end: 20091213
  8. STEROGYL [Concomitant]
     Dates: start: 20091015, end: 20100303
  9. DIAMICRON [Concomitant]
     Dates: start: 20091117
  10. SPECIAFOLDINE [Concomitant]
     Indication: ANAEMIA
     Dates: start: 20091015, end: 20091118
  11. RED BLOOD CELLS [Concomitant]
     Dates: start: 20091017, end: 20091102
  12. KOREC [Concomitant]
     Indication: HYPERTENSION
  13. ESOMEPRAZOLE [Concomitant]
     Dates: start: 20091015
  14. LANTUS [Concomitant]
     Indication: DIABETES MELLITUS
     Dates: start: 20091029, end: 20091113
  15. FEIBA [Suspect]
     Indication: ACQUIRED HAEMOPHILIA
     Route: 042
     Dates: start: 20091016, end: 20091019
  16. CORTANCYL [Concomitant]
     Dates: start: 20091015, end: 20091107
  17. SODIUM CHLORIDE [Concomitant]
     Indication: HYPONATRAEMIA
     Dates: start: 20091020, end: 20091107
  18. FEIBA [Suspect]
     Indication: FACTOR VIII INHIBITION
     Route: 042
     Dates: start: 20091016, end: 20091019
  19. PERFALGAN [Concomitant]
     Indication: HYPERSENSITIVITY
     Dates: start: 20091104, end: 20091118
  20. LASIX [Concomitant]
     Dates: start: 20091102, end: 20091102
  21. MABTHERA [Concomitant]
     Indication: HAEMOPHILIA
     Dates: start: 20091104, end: 20091118
  22. POLARAMINE [Concomitant]
     Indication: HYPERSENSITIVITY
     Dates: start: 20091104, end: 20091118

REACTIONS (2)
  - OEDEMA PERIPHERAL [None]
  - WEIGHT INCREASED [None]
